FAERS Safety Report 5323068-7 (Version None)
Quarter: 2007Q2

REPORT INFORMATION
  Report Type: 
  Country: None (occurrence: None)
  Receive Date: 20070507
  Receipt Date: 20070425
  Transmission Date: 20071010
  Serious: Yes (Other)
  Sender: FDA-Public Use
  Company Number: THYM-11413

PATIENT

DRUGS (3)
  1. THYMOGLOBULIN [Suspect]
     Indication: PANCREAS TRANSPLANT
     Dates: start: 20070401
  2. THYMOGLOBULIN [Suspect]
     Indication: RENAL TRANSPLANT
     Dates: start: 20070401
  3. PROGRAF [Concomitant]

REACTIONS (2)
  - KIDNEY TRANSPLANT REJECTION [None]
  - THROMBOTIC MICROANGIOPATHY [None]
